FAERS Safety Report 4848008-6 (Version None)
Quarter: 2005Q4

REPORT INFORMATION
  Report Type: 
  Country: None (occurrence: None)
  Receive Date: 20051206
  Receipt Date: 20051122
  Transmission Date: 20060501
  Serious: Yes (Hospitalization)
  Sender: FDA-Public Use
  Company Number: EM2005-0425

PATIENT
  Age: 37 Year
  Sex: Male
  Weight: 75 kg

DRUGS (4)
  1. PROLEUKIN [Suspect]
     Indication: RENAL CELL CARCINOMA STAGE UNSPECIFIED
     Dosage: 1.9 MIU/M2, QD X 7D, SUBCUTAN.
     Route: 058
     Dates: start: 20030501, end: 20030501
  2. THALIDOMIDE (THALIDOMIDE) [Concomitant]
  3. MAGNESIUM OXIDE (MAGNESIUM OXIDE) [Concomitant]
  4. MARCUMAR [Concomitant]

REACTIONS (4)
  - DEEP VEIN THROMBOSIS [None]
  - DISEASE PROGRESSION [None]
  - PLEURAL EFFUSION [None]
  - VENA CAVA THROMBOSIS [None]
